FAERS Safety Report 14382892 (Version 1)
Quarter: 2018Q1

REPORT INFORMATION
  Report Type: Report from Study
  Country: None (occurrence: DE)
  Receive Date: 20180114
  Receipt Date: 20180114
  Transmission Date: 20180509
  Serious: Yes (Hospitalization)
  Sender: FDA-Public Use
  Company Number: DE-ABBVIE-18K-062-2221631-00

PATIENT
  Sex: Male

DRUGS (1)
  1. DUODOPA [Suspect]
     Active Substance: CARBIDOPA\LEVODOPA
     Indication: PARKINSON^S DISEASE
     Dosage: MD 2,6 ML, CRD 2,1 ML/H; CRN 1,8 ML/H; ED 1,2 ML
     Route: 050
     Dates: start: 20070521

REACTIONS (1)
  - Embedded device [Recovered/Resolved]
